FAERS Safety Report 6339962-4 (Version None)
Quarter: 2009Q3

REPORT INFORMATION
  Report Type: 
  Country: None (occurrence: None)
  Receive Date: 20090903
  Receipt Date: 20090824
  Transmission Date: 20100115
  Serious: Yes (Hospitalization, Other)
  Sender: FDA-Public Use
  Company Number: US-BAXTER-2008BH003939

PATIENT
  Age: 79 Year
  Sex: Male
  Weight: 79 kg

DRUGS (7)
  1. HEPARIN SODIUM INJECTION [Suspect]
     Indication: CATHETERISATION CARDIAC
     Route: 042
     Dates: start: 20071224, end: 20071224
  2. ALTACE [Concomitant]
     Indication: DRUG USE FOR UNKNOWN INDICATION
     Route: 065
  3. PRAVACHOL [Concomitant]
     Indication: DRUG USE FOR UNKNOWN INDICATION
     Route: 065
  4. ASPIRIN [Concomitant]
     Indication: DRUG USE FOR UNKNOWN INDICATION
     Route: 065
  5. LOPRESSOR [Concomitant]
     Indication: DRUG USE FOR UNKNOWN INDICATION
     Route: 065
  6. PLAVIX [Concomitant]
     Indication: DRUG USE FOR UNKNOWN INDICATION
     Route: 065
  7. PERCOCET [Concomitant]
     Indication: DRUG USE FOR UNKNOWN INDICATION
     Route: 065

REACTIONS (13)
  - ASTHENIA [None]
  - BLINDNESS TRANSIENT [None]
  - BLOOD PRESSURE DECREASED [None]
  - BRADYCARDIA [None]
  - DECREASED APPETITE [None]
  - DIZZINESS [None]
  - ERYTHEMA [None]
  - HAEMATOMA [None]
  - HYPOXIA [None]
  - NAUSEA [None]
  - PNEUMONIA [None]
  - TREMOR [None]
  - UNRESPONSIVE TO STIMULI [None]
